FAERS Safety Report 14859917 (Version 2)
Quarter: 2018Q2

REPORT INFORMATION
  Report Type: Spontaneous
  Country: US (occurrence: US)
  Receive Date: 20180508
  Receipt Date: 20180615
  Transmission Date: 20180711
  Serious: Yes (Hospitalization, Other)
  Sender: FDA-Public Use
  Company Number: US-HORIZON-KRY-0129-2018

PATIENT
  Age: 67 Year
  Sex: Male
  Weight: 82 kg

DRUGS (7)
  1. COLCHICINE. [Concomitant]
     Active Substance: COLCHICINE
     Indication: GOUT
     Dosage: 0.6 MG QD
     Route: 048
  2. EXCEDRIN EXTRA STRENGTH [Concomitant]
     Active Substance: ACETAMINOPHEN\ASPIRIN\CAFFEINE
     Dosage: 1 BID AS NEEDED
     Route: 048
  3. PREDNISONE. [Concomitant]
     Active Substance: PREDNISONE
     Dosage: 2 TIMES 5 MG QD, REDUCED TO 5 MG QD
  4. ASPIRIN. [Concomitant]
     Active Substance: ASPIRIN
     Dosage: 81 MG QD
     Route: 048
  5. GREEN VIBRANCE [Concomitant]
     Dosage: 1 BID
     Route: 048
  6. PRILOSEC [Concomitant]
     Active Substance: OMEPRAZOLE MAGNESIUM
     Route: 048
  7. KRYSTEXXA [Suspect]
     Active Substance: PEGLOTICASE
     Indication: GOUT
     Dosage: 8MG Q 2 WEEKS
     Dates: start: 20180418

REACTIONS (5)
  - Unresponsive to stimuli [Recovered/Resolved]
  - Hyperhidrosis [Recovered/Resolved]
  - Throat tightness [Recovered/Resolved]
  - Rash pruritic [Recovered/Resolved]
  - Urticaria [Recovered/Resolved]

NARRATIVE: CASE EVENT DATE: 20180502
